FAERS Safety Report 9069073 (Version 1)
Quarter: 2013Q1

REPORT INFORMATION
  Report Type: Spontaneous
  Country: SA (occurrence: SA)
  Receive Date: 20130215
  Receipt Date: 20130215
  Transmission Date: 20140127
  Serious: Yes (Death, Other)
  Sender: FDA-Public Use
  Company Number: SA-ACCORD-016394

PATIENT
  Age: 16 Year
  Sex: Female

DRUGS (5)
  1. TACROLIMUS [Suspect]
     Indication: RENAL TRANSPLANT
     Dates: end: 20120226
  2. MYCOPHENOLATE MOFETIL [Suspect]
     Indication: RENAL TRANSPLANT
  3. TRIMETHOPRIM SULFAMETHOXAZOLE [Concomitant]
     Indication: PROPHYLAXIS
  4. VALGANCICLOVIR [Concomitant]
     Indication: PROPHYLAXIS
  5. PREDNISOLONE [Suspect]
     Indication: RENAL TRANSPLANT

REACTIONS (6)
  - Cardiac arrest [Fatal]
  - Cytomegalovirus infection [Fatal]
  - Urinary tract infection pseudomonal [Unknown]
  - Escherichia bacteraemia [Unknown]
  - Thrombotic thrombocytopenic purpura [Unknown]
  - Renal tubular necrosis [Unknown]
